FAERS Safety Report 5099521-0 (Version None)
Quarter: 2006Q3

REPORT INFORMATION
  Report Type: 
  Country: None (occurrence: None)
  Receive Date: 20060908
  Receipt Date: 20060725
  Transmission Date: 20061208
  Serious: Yes (Hospitalization)
  Sender: FDA-Public Use
  Company Number: JP-ALLERGAN-0603014US

PATIENT
  Sex: Female

DRUGS (3)
  1. ALESION TABLET [Suspect]
     Indication: RHINITIS ALLERGIC
     Dosage: 20 MG, UNK
     Route: 048
     Dates: start: 20000218, end: 20060508
  2. LIPOVAS /00848101/ [Concomitant]
     Indication: HYPERLIPIDAEMIA
     Dosage: 5 MG, UNK
     Route: 048
     Dates: start: 19990917
  3. NU-LOTAN [Concomitant]
     Indication: HYPERTENSION
     Dosage: 50 MG, UNK
     Route: 048
     Dates: start: 19990917, end: 20060509

REACTIONS (4)
  - ALANINE AMINOTRANSFERASE INCREASED [None]
  - ASPARTATE AMINOTRANSFERASE INCREASED [None]
  - BLOOD LACTATE DEHYDROGENASE INCREASED [None]
  - HEPATIC FUNCTION ABNORMAL [None]
